FAERS Safety Report 18679265 (Version 7)
Quarter: 2022Q2

REPORT INFORMATION
  Report Type: Spontaneous
  Country: US (occurrence: US)
  Receive Date: 20201229
  Receipt Date: 20220505
  Transmission Date: 20220721
  Serious: No
  Sender: FDA-Public Use
  Company Number: US-PFIZER INC-2020513041

PATIENT
  Age: 62 Year
  Sex: Female

DRUGS (5)
  1. XELJANZ XR [Suspect]
     Active Substance: TOFACITINIB CITRATE
     Indication: Rheumatoid arthritis
     Dosage: 11 MG, 1X/DAY (DAILY)
     Route: 048
     Dates: start: 202012, end: 20210725
  2. XELJANZ XR [Suspect]
     Active Substance: TOFACITINIB CITRATE
     Dosage: 11 MG, 1X/DAY (DAILY)
     Route: 048
     Dates: start: 20210802, end: 20210825
  3. XELJANZ XR [Suspect]
     Active Substance: TOFACITINIB CITRATE
     Dosage: 11 MG,1X/DAY
     Route: 048
     Dates: start: 202012, end: 202108
  4. PREDNISONE [Concomitant]
     Active Substance: PREDNISONE
     Dosage: UNK
  5. MELOXICAM [Concomitant]
     Active Substance: MELOXICAM
     Dosage: UNK

REACTIONS (13)
  - Therapeutic product effect incomplete [Unknown]
  - Product dose omission issue [Unknown]
  - Cough [Recovered/Resolved]
  - Peripheral swelling [Recovering/Resolving]
  - Arthralgia [Unknown]
  - Asthenia [Unknown]
  - Hepatic enzyme abnormal [Unknown]
  - Pain in extremity [Unknown]
  - Renal function test abnormal [Not Recovered/Not Resolved]
  - Pain [Unknown]
  - Pyrexia [Unknown]
  - Inflammation [Unknown]
  - Renal pain [Not Recovered/Not Resolved]
